FAERS Safety Report 10043218 (Version 1)
Quarter: 2014Q1

REPORT INFORMATION
  Report Type: Spontaneous
  Country: US (occurrence: None)
  Receive Date: 20140327
  Receipt Date: 20140327
  Transmission Date: 20141002
  Serious: Yes (Hospitalization, Other)
  Sender: FDA-Public Use
  Company Number: None

PATIENT
  Age: 57 Year
  Sex: Male
  Weight: 84.37 kg

DRUGS (1)
  1. XIAFLEX [Suspect]
     Indication: DUPUYTREN^S CONTRACTURE
     Dates: start: 20131111, end: 20131111

REACTIONS (13)
  - Pain in extremity [None]
  - Local swelling [None]
  - Localised infection [None]
  - Product contamination microbial [None]
  - Syringe issue [None]
  - Splinter [None]
  - Streptococcus test positive [None]
  - Discomfort [None]
  - Temperature intolerance [None]
  - Poor peripheral circulation [None]
  - Skin necrosis [None]
  - Bone loss [None]
  - Procedural complication [None]
